FAERS Safety Report 21804900 (Version 1)
Quarter: 2023Q1

REPORT INFORMATION
  Report Type: Spontaneous
  Country: TR (occurrence: TR)
  Receive Date: 20230102
  Receipt Date: 20230102
  Transmission Date: 20230417
  Serious: Yes (Life-Threatening, Hospitalization, Other)
  Sender: FDA-Public Use
  Company Number: TR-ALKEM LABORATORIES LIMITED-TR-ALKEM-2022-14722

PATIENT
  Age: 36 Year
  Sex: Female

DRUGS (25)
  1. MYCOPHENOLATE MOFETIL [Suspect]
     Active Substance: MYCOPHENOLATE MOFETIL
     Indication: Immunosuppressant drug therapy
     Dosage: UNK (POST-TRANSPLANT FOLLOW-UP DAY 0)
     Route: 065
  2. MYCOPHENOLATE MOFETIL [Suspect]
     Active Substance: MYCOPHENOLATE MOFETIL
     Dosage: UNK (POST-TRANSPLANT FOLLOW-UP DAY 1)
     Route: 065
  3. MYCOPHENOLATE MOFETIL [Suspect]
     Active Substance: MYCOPHENOLATE MOFETIL
     Dosage: UNK (POST-TRANSPLANT FOLLOW-UP DAY 2)
     Route: 065
  4. MYCOPHENOLATE MOFETIL [Suspect]
     Active Substance: MYCOPHENOLATE MOFETIL
     Dosage: UNK (POST-TRANSPLANT FOLLOW-UP DAY FROM 3 TO 10)
     Route: 065
  5. MYCOPHENOLATE MOFETIL [Suspect]
     Active Substance: MYCOPHENOLATE MOFETIL
     Dosage: UNK (POST-TRANSPLANT FOLLOW-UP DAY FROM 11 (DISCHARGE))
     Route: 065
  6. MYCOPHENOLATE MOFETIL [Suspect]
     Active Substance: MYCOPHENOLATE MOFETIL
     Dosage: UNK (POST-TRANSPLANT FOLLOW-UP DAY 13 (2ND ADMISSION)
     Route: 065
  7. MYCOPHENOLATE MOFETIL [Suspect]
     Active Substance: MYCOPHENOLATE MOFETIL
     Dosage: UNK (POST-TRANSPLANT FOLLOW-UP DAY FROM 36 TO 38)
     Route: 065
  8. MYCOPHENOLATE MOFETIL [Suspect]
     Active Substance: MYCOPHENOLATE MOFETIL
     Dosage: UNK (POST-TRANSPLANT FOLLOW-UP DAY 39 (ALLOGRAFT REJECTION)
     Route: 065
  9. MYCOPHENOLATE MOFETIL [Suspect]
     Active Substance: MYCOPHENOLATE MOFETIL
     Dosage: UNK (POST-TRANSPLANT FOLLOW-UP DAY FROM 40 TO 45)
     Route: 065
  10. MYCOPHENOLATE MOFETIL [Suspect]
     Active Substance: MYCOPHENOLATE MOFETIL
     Dosage: UNK (POST-TRANSPLANT FOLLOW-UP DAY FROM 46 TO 57)
     Route: 065
  11. MYCOPHENOLATE MOFETIL [Suspect]
     Active Substance: MYCOPHENOLATE MOFETIL
     Dosage: UNK (POST-TRANSPLANT FOLLOW-UP DAY 58)
     Route: 065
  12. MYCOPHENOLATE MOFETIL [Suspect]
     Active Substance: MYCOPHENOLATE MOFETIL
     Dosage: UNK (POST-TRANSPLANT FOLLOW-UP DAY 59)
     Route: 065
  13. TACROLIMUS [Suspect]
     Active Substance: TACROLIMUS
     Indication: Immunosuppressant drug therapy
     Dosage: UNK (POST-TRANSPLANT FOLLOW-UP DAY 0)
     Route: 065
  14. TACROLIMUS [Suspect]
     Active Substance: TACROLIMUS
     Dosage: UNK (POST-TRANSPLANT FOLLOW-UP DAY 1)
     Route: 065
  15. TACROLIMUS [Suspect]
     Active Substance: TACROLIMUS
     Dosage: UNK (POST-TRANSPLANT FOLLOW-UP DAY 2)
     Route: 065
  16. TACROLIMUS [Suspect]
     Active Substance: TACROLIMUS
     Dosage: UNK (POST-TRANSPLANT FOLLOW-UP DAY FROM 3 TO 10)
     Route: 065
  17. TACROLIMUS [Suspect]
     Active Substance: TACROLIMUS
     Dosage: UNK (POST-TRANSPLANT FOLLOW-UP DAY FROM 11 (DISCHARGE)
     Route: 065
  18. TACROLIMUS [Suspect]
     Active Substance: TACROLIMUS
     Dosage: UNK (POST-TRANSPLANT FOLLOW-UP DAY 13 (2ND ADMISSION)
     Route: 065
  19. TACROLIMUS [Suspect]
     Active Substance: TACROLIMUS
     Dosage: UNK (POST-TRANSPLANT FOLLOW-UP DAY FROM 36 TO 38)
     Route: 065
  20. TACROLIMUS [Suspect]
     Active Substance: TACROLIMUS
     Dosage: UNK (POST-TRANSPLANT FOLLOW-UP DAY 39 (ALLOGRAFT REJECTION)
     Route: 065
  21. TACROLIMUS [Suspect]
     Active Substance: TACROLIMUS
     Dosage: UNK (POST-TRANSPLANT FOLLOW-UP DAY FROM 40 TO 45)
     Route: 065
  22. TACROLIMUS [Suspect]
     Active Substance: TACROLIMUS
     Dosage: UNK (POST-TRANSPLANT FOLLOW-UP DAY FROM 46 TO 57)
     Route: 065
  23. TACROLIMUS [Suspect]
     Active Substance: TACROLIMUS
     Dosage: UNK (POST-TRANSPLANT FOLLOW-UP DAY 58)
     Route: 065
  24. TACROLIMUS [Suspect]
     Active Substance: TACROLIMUS
     Dosage: UNK (POST-TRANSPLANT FOLLOW-UP DAY 59)
     Route: 065
  25. TACROLIMUS [Suspect]
     Active Substance: TACROLIMUS
     Dosage: UNK (POST-TRANSPLANT FOLLOW-UP DAY 60 (GRAFT LOSS)
     Route: 065

REACTIONS (4)
  - Passenger lymphocyte syndrome [Unknown]
  - Haemolytic anaemia [Recovered/Resolved]
  - Pneumonia bacterial [Unknown]
  - Graft loss [Unknown]
